FAERS Safety Report 7348033-X (Version None)
Quarter: 2011Q1

REPORT INFORMATION
  Report Type: 
  Country: None (occurrence: None)
  Receive Date: 20110311
  Receipt Date: 20110214
  Transmission Date: 20110831
  Serious: Yes (Hospitalization, Other)
  Sender: FDA-Public Use
  Company Number: US-BAYER-201039149NA

PATIENT
  Sex: Female
  Weight: 107.3 kg

DRUGS (5)
  1. ROBAXIN [Concomitant]
  2. XANAX [Concomitant]
  3. SOMA [Concomitant]
  4. VICODIN [Concomitant]
  5. YASMIN [Suspect]
     Indication: PRODUCT USED FOR UNKNOWN INDICATION
     Route: 048

REACTIONS (3)
  - GALLBLADDER NON-FUNCTIONING [None]
  - DYSFUNCTIONAL UTERINE BLEEDING [None]
  - PELVIC PAIN [None]
